FAERS Safety Report 20963420 (Version 1)
Quarter: 2022Q2

REPORT INFORMATION
  Report Type: Spontaneous
  Country: US (occurrence: US)
  Receive Date: 20220615
  Receipt Date: 20220615
  Transmission Date: 20220721
  Serious: No
  Sender: FDA-Public Use
  Company Number: US-BRISTOL-MYERS SQUIBB COMPANY-2022-054815

PATIENT
  Age: 73 Year
  Sex: Female
  Weight: 40.82 kg

DRUGS (1)
  1. REVLIMID [Suspect]
     Active Substance: LENALIDOMIDE
     Indication: Plasma cell myeloma
     Dosage: D 1-21 Q 28 DAYS
     Dates: start: 20200201

REACTIONS (3)
  - Pain [Unknown]
  - Hypoaesthesia [Unknown]
  - Rash [Unknown]
